FAERS Safety Report 13126349 (Version 1)
Quarter: 2017Q1

REPORT INFORMATION
  Report Type: Report from Study
  Country: US (occurrence: US)
  Receive Date: 20170118
  Receipt Date: 20170118
  Transmission Date: 20170428
  Serious: Yes (Hospitalization, Other)
  Sender: FDA-Public Use
  Company Number: US-ARIAD-2016US006216

PATIENT
  Age: 38 Year
  Sex: Female

DRUGS (2)
  1. ICLUSIG [Suspect]
     Active Substance: PONATINIB
     Dosage: 30 MG, QD
     Route: 048
  2. ICLUSIG [Suspect]
     Active Substance: PONATINIB
     Indication: ACUTE LYMPHOCYTIC LEUKAEMIA
     Dosage: 30 MG, QD
     Route: 048
     Dates: start: 20151218

REACTIONS (11)
  - Dry skin [Unknown]
  - Septic shock [Unknown]
  - Capnocytophaga infection [Unknown]
  - Dizziness [Unknown]
  - Cellulitis [Unknown]
  - Chemotherapy [Not Recovered/Not Resolved]
  - Depression [Unknown]
  - Febrile neutropenia [Unknown]
  - Epistaxis [Unknown]
  - Skin ulcer [Unknown]
  - Cytopenia [Unknown]

NARRATIVE: CASE EVENT DATE: 20151128
